FAERS Safety Report 15494767 (Version 1)
Quarter: 2018Q4

REPORT INFORMATION
  Report Type: Spontaneous
  Country: US (occurrence: US)
  Receive Date: 20181012
  Receipt Date: 20181012
  Transmission Date: 20190205
  Serious: Yes (Hospitalization, Other)
  Sender: FDA-Public Use
  Company Number: US-SAKK-2018SA278452AA

PATIENT
  Age: 65 Year
  Sex: Female
  Weight: 100 kg

DRUGS (1)
  1. ENOXAPARIN SODIUM. [Suspect]
     Active Substance: ENOXAPARIN SODIUM
     Dosage: 1 MG/KG, QH

REACTIONS (5)
  - Shock haemorrhagic [Recovered/Resolved]
  - Abdominal wall haematoma [Recovered/Resolved]
  - Abdominal wall haemorrhage [Recovered/Resolved]
  - Abdominal wall mass [Recovered/Resolved]
  - Renal disorder [Recovered/Resolved]
